FAERS Safety Report 9290889 (Version 1)
Quarter: 2013Q2

REPORT INFORMATION
  Report Type: Spontaneous
  Country: US (occurrence: None)
  Receive Date: 20130514
  Receipt Date: 20130514
  Transmission Date: 20140414
  Serious: Yes (Other)
  Sender: FDA-Public Use
  Company Number: None

PATIENT
  Sex: 0

DRUGS (2)
  1. DIAZEPAM [Suspect]
     Indication: PAIN
     Dates: start: 20130410, end: 20130510
  2. DIAZEPAM [Suspect]
     Indication: ANXIETY
     Dates: start: 20130410, end: 20130510

REACTIONS (1)
  - Drug withdrawal syndrome [None]
